FAERS Safety Report 17148979 (Version 2)
Quarter: 2019Q4

REPORT INFORMATION
  Report Type: Spontaneous
  Country: US (occurrence: US)
  Receive Date: 20191213
  Receipt Date: 20191225
  Transmission Date: 20200122
  Serious: No
  Sender: FDA-Public Use
  Company Number: US-AMGEN-USASP2019206873

PATIENT
  Age: 63 Year
  Sex: Male
  Weight: 89.1 kg

DRUGS (2)
  1. NEULASTA [Suspect]
     Active Substance: PEGFILGRASTIM
     Indication: NEUTROPENIA
     Dosage: 6 MILLIGRAM
     Route: 058
  2. PACLITAXEL. [Concomitant]
     Active Substance: PACLITAXEL
     Indication: HEPATIC CANCER
     Dosage: UNK

REACTIONS (4)
  - Constipation [Unknown]
  - Confusional state [Unknown]
  - Bone pain [Unknown]
  - Pain [Recovered/Resolved]

NARRATIVE: CASE EVENT DATE: 20191211
